FAERS Safety Report 23841087 (Version 2)
Quarter: 2024Q2

REPORT INFORMATION
  Report Type: Spontaneous
  Country: FR (occurrence: FR)
  Receive Date: 20240510
  Receipt Date: 20240605
  Transmission Date: 20240716
  Serious: Yes (Hospitalization, Other)
  Sender: FDA-Public Use
  Company Number: FR-SA-SAC20240501001961

PATIENT
  Age: 40 Year
  Sex: Male
  Weight: 65 kg

DRUGS (1)
  1. CERDELGA [Suspect]
     Active Substance: ELIGLUSTAT
     Indication: Gaucher^s disease
     Dosage: 84 MG, BID
     Route: 065
     Dates: start: 20170731

REACTIONS (5)
  - Subcutaneous abscess [Recovered/Resolved]
  - Hyperthermia [Recovered/Resolved]
  - Hypothermia [Recovered/Resolved]
  - Discomfort [Recovered/Resolved]
  - Tooth extraction [Recovered/Resolved]
